FAERS Safety Report 5573068-7 (Version None)
Quarter: 2007Q4

REPORT INFORMATION
  Report Type: 
  Country: None (occurrence: None)
  Receive Date: 20071224
  Receipt Date: 20071218
  Transmission Date: 20080405
  Serious: Yes (Other)
  Sender: FDA-Public Use
  Company Number: PHHY2007CA00987

PATIENT
  Age: 59 Year
  Sex: Female

DRUGS (1)
  1. DIOVAN HCT [Suspect]
     Indication: HYPERTENSION
     Dosage: 160/25 MG, QD
     Route: 048
     Dates: start: 20071110, end: 20071205

REACTIONS (8)
  - BLOOD PRESSURE FLUCTUATION [None]
  - DIZZINESS [None]
  - DYSPNOEA [None]
  - EYE DISORDER [None]
  - FEELING ABNORMAL [None]
  - HEART RATE ABNORMAL [None]
  - INSOMNIA [None]
  - MALAISE [None]
